FAERS Safety Report 7523498-9 (Version None)
Quarter: 2011Q2

REPORT INFORMATION
  Report Type: 
  Country: None (occurrence: None)
  Receive Date: 20110603
  Receipt Date: 20091031
  Transmission Date: 20111010
  Serious: Yes (Other)
  Sender: FDA-Public Use
  Company Number: US-BAYER-200938368NA

PATIENT
  Age: 59 Year
  Sex: Male
  Weight: 113 kg

DRUGS (27)
  1. LOVASTATIN [Concomitant]
     Dosage: 80 MG, QD
     Route: 048
     Dates: start: 20050101
  2. FUROSEMIDE [Concomitant]
     Dosage: 400 MG, UNK
     Route: 042
     Dates: start: 20071018
  3. GLIPIZIDE [Concomitant]
     Dosage: 5 MG, UNK
     Route: 048
     Dates: start: 20050101
  4. PANCURONIUM BROMIDE [Concomitant]
     Dosage: 10 MG, UNK
     Dates: start: 20071018, end: 20071018
  5. PHENYLEPHRINE HCL [Concomitant]
     Dosage: 9.61 MG, UNK
     Route: 042
     Dates: start: 20071018
  6. WARFARIN SODIUM [Concomitant]
     Dosage: 5 MG, QD
     Route: 048
     Dates: start: 20050101
  7. HEPARIN [Concomitant]
     Dosage: 40 U, UNK
     Route: 042
     Dates: start: 20071018
  8. TRASYLOL [Suspect]
     Indication: AORTIC VALVE REPLACEMENT
     Dosage: 400 TO 200 ML PER HOUR
     Route: 042
     Dates: start: 20071018, end: 20071018
  9. NOVOLOG [Concomitant]
     Dosage: 10 U, BEFORE MEALS
     Route: 058
     Dates: start: 20050101
  10. SUCCINYLCHOLINE CHLORIDE [Concomitant]
     Dosage: 180 MG, UNK
     Dates: start: 20071018, end: 20071018
  11. PROPOFOL [Concomitant]
     Dosage: 2.26 G, UNK
     Route: 042
     Dates: start: 20071018, end: 20071018
  12. PROTAMINE SULFATE [Concomitant]
     Dosage: 460 MG, UNK
     Route: 042
     Dates: start: 20071018, end: 20071018
  13. LISINOPRIL [Concomitant]
     Dosage: 20 MG, QD
     Dates: start: 20050101
  14. METOPROLOL TARTRATE [Concomitant]
     Dosage: 125 MG, QD
     Route: 048
     Dates: start: 20050101
  15. GEMFIBROZIL [Concomitant]
     Dosage: 600 MG, QD
     Route: 048
     Dates: start: 20050101
  16. VANCOMYCIN [Concomitant]
     Dosage: 1000 MG, UNK
     Route: 042
  17. MIDAZOLAM HCL [Concomitant]
     Dosage: 10 MG, UNK
     Dates: start: 20071018, end: 20071018
  18. FENTANYL [Concomitant]
     Dosage: 1250 MCG
     Route: 042
     Dates: start: 20071018, end: 20071018
  19. REGULAR INSULIN [Concomitant]
     Dosage: 52.08 U, UNK
     Route: 042
  20. ETOMIDATE [Concomitant]
     Dosage: 20 MG, UNK
     Route: 042
     Dates: start: 20071018, end: 20071018
  21. LIDOCAINE [Concomitant]
     Dosage: 100 MG, UNK
     Route: 042
     Dates: start: 20071018, end: 20071018
  22. DOPAMINE HCL [Concomitant]
     Dosage: 24.86 MG, UNK
     Route: 042
     Dates: start: 20071018
  23. HYDROCODONE BITARTRATE [Concomitant]
     Dosage: UNK
     Route: 048
     Dates: start: 20050101
  24. FUROSEMIDE [Concomitant]
     Dosage: UNK
     Route: 048
     Dates: start: 20050101, end: 20050101
  25. INSULIN [INSULIN] [Concomitant]
     Dosage: 50 UNITS AT 1AM AND AT 1PM
     Route: 058
     Dates: start: 20050101
  26. ACETYLSALICYLIC ACID SRT [Concomitant]
     Dosage: 325 MG, QD
     Route: 048
  27. MILRINONE [Concomitant]
     Dosage: 5 MG, UNK
     Route: 042
     Dates: start: 20071018, end: 20071018

REACTIONS (10)
  - ANXIETY [None]
  - UNEVALUABLE EVENT [None]
  - RENAL FAILURE [None]
  - RENAL IMPAIRMENT [None]
  - STRESS [None]
  - FEAR [None]
  - INJURY [None]
  - EMOTIONAL DISTRESS [None]
  - PAIN [None]
  - RENAL INJURY [None]
